FAERS Safety Report 4285644-2 (Version None)
Quarter: 2004Q1

REPORT INFORMATION
  Report Type: 
  Country: None (occurrence: None)
  Receive Date: 20040203
  Receipt Date: 20040122
  Transmission Date: 20041129
  Serious: Yes (Hospitalization)
  Sender: FDA-Public Use
  Company Number: US064647

PATIENT
  Age: 60 Year
  Sex: Male
  Weight: 118 kg

DRUGS (8)
  1. ENBREL [Suspect]
     Indication: RHEUMATOID ARTHRITIS
     Dosage: 25 MG, 2 IN 1 WEEKS, SC
     Route: 058
     Dates: start: 20030121, end: 20040107
  2. PREDNISONE [Concomitant]
  3. PANTOLOC [Concomitant]
  4. NIFEDIPINE [Concomitant]
  5. LEFLUNOMIDE [Concomitant]
  6. CELECOXIB [Concomitant]
  7. TRAZODONE HCL [Concomitant]
  8. ALENDRONATE SODIUM [Concomitant]

REACTIONS (4)
  - ATELECTASIS [None]
  - DRY MOUTH [None]
  - LOSS OF CONSCIOUSNESS [None]
  - PLEURAL EFFUSION [None]
